FAERS Safety Report 6720399-0 (Version None)
Quarter: 2010Q2

REPORT INFORMATION
  Report Type: 
  Country: None (occurrence: None)
  Receive Date: 20100511
  Receipt Date: 20100429
  Transmission Date: 20101027
  Serious: Yes (Other)
  Sender: FDA-Public Use
  Company Number: CA-PFIZER INC-2010054418

PATIENT
  Age: 53 Year
  Sex: Female

DRUGS (8)
  1. CHAMPIX [Suspect]
     Dosage: UNK
     Dates: start: 20100423
  2. ENBREL [Concomitant]
     Dosage: UNK
  3. IMOVANE [Concomitant]
     Dosage: UNK
  4. MS CONTIN [Concomitant]
     Dosage: UNK
  5. PROZAC [Concomitant]
     Dosage: UNK
  6. MISOPROSTOL [Concomitant]
     Dosage: UNK
  7. TORADOL [Concomitant]
     Dosage: UNK
  8. PANTOPRAZOLE SODIUM [Concomitant]
     Indication: ULCER
     Dosage: UNK

REACTIONS (1)
  - HAEMATOCHEZIA [None]
